FAERS Safety Report 19168691 (Version 1)
Quarter: 2021Q2

REPORT INFORMATION
  Report Type: Report from Study
  Country: GB (occurrence: GB)
  Receive Date: 20210422
  Receipt Date: 20210422
  Transmission Date: 20210717
  Serious: Yes (Hospitalization)
  Sender: FDA-Public Use
  Company Number: GB-MYLANLABS-2021M1023850

PATIENT
  Sex: Female

DRUGS (6)
  1. METHOTREXATE. [Suspect]
     Active Substance: METHOTREXATE
     Indication: GESTATIONAL TROPHOBLASTIC TUMOUR
     Dosage: 12 HOUR INFUSION ON DAY 1; AS A PART OF EMA?CO REGIMEN
     Route: 041
  2. NORMAL SALINE [Concomitant]
     Active Substance: SODIUM CHLORIDE
     Indication: VEHICLE SOLUTION USE
     Dosage: CYCLOPHOSPHAMIDE IN 250ML SODIUM CHLORIDE OVER 30 MIN ON DAY 8
     Route: 041
  3. VINCRISTINE [Suspect]
     Active Substance: VINCRISTINE
     Indication: GESTATIONAL TROPHOBLASTIC TUMOUR
     Dosage: 30 MINUTE INFUSION ON DAY 8; AS A PART OF EMA?CO REGIMEN
     Route: 041
  4. DACTINOMYCIN [Suspect]
     Active Substance: DACTINOMYCIN
     Indication: GESTATIONAL TROPHOBLASTIC TUMOUR
     Dosage: 0.5 MILLIGRAM, ON DAY 1 AND DAY 2; AS A PART OF EMA?CO REGIMEN
     Route: 040
  5. ETOPOSIDE. [Suspect]
     Active Substance: ETOPOSIDE
     Indication: GESTATIONAL TROPHOBLASTIC TUMOUR
     Dosage: ONE HOUR INFUSION ON DAY 1 AND DAY 2; AS A PART OF EMA?CO REGIMEN
     Route: 041
  6. CYCLOPHOSPHAMIDE. [Suspect]
     Active Substance: CYCLOPHOSPHAMIDE
     Indication: GESTATIONAL TROPHOBLASTIC TUMOUR
     Dosage: CYCLOPHOSPHAMIDE IN 250ML SODIUM CHLORIDE OVER 30 MIN ON DAY 8; AS A PART OF EMA?CO REGIMEN
     Route: 041

REACTIONS (2)
  - Mucosal inflammation [Unknown]
  - Alopecia [Unknown]
